FAERS Safety Report 6988850-9 (Version None)
Quarter: 2010Q3

REPORT INFORMATION
  Report Type: 
  Country: None (occurrence: None)
  Receive Date: 20100916
  Receipt Date: 20100909
  Transmission Date: 20110219
  Serious: No
  Sender: FDA-Public Use
  Company Number: US-PFIZER INC-001-0945-M0200165

PATIENT
  Sex: Female
  Weight: 61.224 kg

DRUGS (5)
  1. NEURONTIN [Suspect]
     Indication: NECK PAIN
     Dosage: DAILY
     Route: 048
  2. NEURONTIN [Suspect]
     Indication: HEADACHE
     Dosage: UNK
     Route: 048
     Dates: end: 20070101
  3. NEURONTIN [Suspect]
     Indication: EYE PAIN
     Dosage: 900 MG DAILY
     Dates: end: 20070101
  4. EFFEXOR [Suspect]
     Indication: ILL-DEFINED DISORDER
     Dosage: UNK
     Route: 065
  5. ALPRAZOLAM [Concomitant]
     Dosage: UNK
     Route: 065

REACTIONS (5)
  - DRUG INEFFECTIVE [None]
  - GASTRIC ULCER [None]
  - INCORRECT DOSE ADMINISTERED [None]
  - INSOMNIA [None]
  - WEIGHT INCREASED [None]
